FAERS Safety Report 7397853-4 (Version None)
Quarter: 2011Q2

REPORT INFORMATION
  Report Type: 
  Country: None (occurrence: None)
  Receive Date: 20110406
  Receipt Date: 20110331
  Transmission Date: 20111010
  Serious: Yes (Hospitalization, Other)
  Sender: FDA-Public Use
  Company Number: US-PFIZER INC-2010117773

PATIENT
  Sex: Female
  Weight: 61.678 kg

DRUGS (13)
  1. DURAGESIC [Concomitant]
     Indication: PAIN
     Dosage: 37.5 MG, 1X/DAY
     Route: 062
  2. SPIRIVA [Concomitant]
     Indication: CHRONIC OBSTRUCTIVE PULMONARY DISEASE
     Dosage: UNK
  3. VANCOMYCIN [Suspect]
     Indication: STAPHYLOCOCCAL INFECTION
     Dosage: UNK
  4. WARFARIN [Concomitant]
     Indication: ANTICOAGULANT THERAPY
     Dosage: UNK
     Route: 048
  5. LORTAB [Concomitant]
     Indication: PAIN
     Dosage: 5/500 MG
     Route: 048
  6. PROZAC [Concomitant]
     Indication: DEPRESSION
     Dosage: 60 MG, 1X/DAY
     Route: 048
  7. COREG [Concomitant]
     Indication: CARDIAC OPERATION
     Dosage: 6.5 MG, 2X/DAY
     Route: 048
  8. KLONOPIN [Concomitant]
     Indication: DEPRESSION
     Dosage: 1 MG, 2X/DAY
     Route: 048
  9. BACTRIM [Suspect]
     Indication: STAPHYLOCOCCAL INFECTION
     Dosage: UNK
     Dates: start: 20090101, end: 20100101
  10. ZOSYN [Suspect]
     Dosage: UNK
  11. SYMBICORT [Concomitant]
     Indication: ASTHMA
     Dosage: UNK
  12. SEROQUEL [Concomitant]
     Indication: CONVULSION
     Dosage: 50 MG, 1X/DAY
     Route: 048
  13. ZYVOX [Suspect]
     Indication: STAPHYLOCOCCAL INFECTION
     Dosage: UNK
     Dates: start: 20100801, end: 20100101

REACTIONS (7)
  - WEIGHT DECREASED [None]
  - HYPOAESTHESIA [None]
  - DIARRHOEA [None]
  - BEDRIDDEN [None]
  - ABSCESS LIMB [None]
  - PROCTALGIA [None]
  - ABASIA [None]
